FAERS Safety Report 10967027 (Version 1)
Quarter: 2015Q1

REPORT INFORMATION
  Report Type: Spontaneous
  Country: US (occurrence: None)
  Receive Date: 20150327
  Receipt Date: 20150327
  Transmission Date: 20150721
  Serious: No
  Sender: FDA-Public Use
  Company Number: None

PATIENT
  Age: 82 Year
  Sex: Male
  Weight: 86.18 kg

DRUGS (1)
  1. ZYTIGA [Suspect]
     Active Substance: ABIRATERONE ACETATE
     Indication: PROSTATE CANCER METASTATIC
     Dosage: TAKEN BY MOUTH
     Dates: start: 20141201, end: 20150214

REACTIONS (8)
  - Asthenia [None]
  - Pneumonia [None]
  - Bedridden [None]
  - Peripheral swelling [None]
  - Anaemia [None]
  - Respiratory tract infection [None]
  - Quality of life decreased [None]
  - Severe acute respiratory syndrome [None]

NARRATIVE: CASE EVENT DATE: 20150223
